FAERS Safety Report 11158909 (Version 2)
Quarter: 2015Q3

REPORT INFORMATION
  Report Type: Report from Study
  Country: ES (occurrence: ES)
  Receive Date: 20150603
  Receipt Date: 20150902
  Transmission Date: 20151125
  Serious: Yes (Death, Other)
  Sender: FDA-Public Use
  Company Number: ES-BAYER-2015-262433

PATIENT
  Age: 79 Year
  Sex: Female

DRUGS (5)
  1. REGORAFENIB [Suspect]
     Active Substance: REGORAFENIB
     Indication: COLORECTAL CANCER METASTATIC
     Dosage: 40 MG, BID
     Route: 048
  2. REGORAFENIB [Suspect]
     Active Substance: REGORAFENIB
     Indication: COLORECTAL CANCER METASTATIC
     Dosage: 120MG DAILY
     Route: 048
  3. LOPERAMIDE [Concomitant]
     Active Substance: LOPERAMIDE
     Indication: PROPHYLAXIS AGAINST DIARRHOEA
     Dosage: 2 MG
     Route: 048
  4. REGORAFENIB [Suspect]
     Active Substance: REGORAFENIB
     Indication: COLORECTAL CANCER METASTATIC
     Dosage: UNK
     Route: 048
     Dates: start: 20131103, end: 20150506
  5. LEVOTHROID [Concomitant]
     Active Substance: LEVOTHYROXINE SODIUM
     Dosage: 25MG
     Dates: start: 20141230, end: 20150421

REACTIONS (2)
  - Congestive cardiomyopathy [Fatal]
  - Acute hepatic failure [Fatal]

NARRATIVE: CASE EVENT DATE: 20150512
